FAERS Safety Report 10517924 (Version 2)
Quarter: 2014Q4

REPORT INFORMATION
  Report Type: Spontaneous
  Country: JP (occurrence: JP)
  Receive Date: 20141015
  Receipt Date: 20141111
  Transmission Date: 20150528
  Serious: Yes (Death)
  Sender: FDA-Public Use
  Company Number: JP-BRISTOL-MYERS SQUIBB COMPANY-21493135

PATIENT
  Age: 75 Year
  Sex: Male

DRUGS (4)
  1. ELIQUIS [Suspect]
     Active Substance: APIXABAN
     Indication: CEREBROVASCULAR ACCIDENT PROPHYLAXIS
     Dosage: TABS 5 MG
     Route: 048
     Dates: start: 20140327
  2. TANATRIL [Concomitant]
     Active Substance: IMIDAPRIL
  3. NITRENDIPINE [Concomitant]
     Active Substance: NITRENDIPINE
  4. ARTIST [Concomitant]
     Active Substance: CARVEDILOL

REACTIONS (1)
  - Cerebral haemorrhage [Fatal]

NARRATIVE: CASE EVENT DATE: 20140911
